FAERS Safety Report 9002707 (Version 1)
Quarter: 2013Q1

REPORT INFORMATION
  Report Type: Spontaneous
  Country: US (occurrence: US)
  Receive Date: 20130107
  Receipt Date: 20130107
  Transmission Date: 20140127
  Serious: No
  Sender: FDA-Public Use
  Company Number: US-GLAXOSMITHKLINE-A0981569A

PATIENT
  Age: 60 Year
  Sex: Female
  Weight: 95.34 kg

DRUGS (7)
  1. BENLYSTA [Suspect]
     Indication: SYSTEMIC LUPUS ERYTHEMATOSUS
     Dosage: 120MG CYCLIC
     Route: 042
     Dates: start: 20120511
  2. PLAQUENIL [Concomitant]
     Dosage: 100MG PER DAY
  3. MOBIC [Concomitant]
     Dosage: 15MG PER DAY
  4. CALCIUM [Concomitant]
  5. PROBIOTICS [Concomitant]
  6. SYNTHROID [Concomitant]
     Dosage: 112MCG PER DAY
  7. VITAMIN D [Concomitant]

REACTIONS (6)
  - Dizziness [Recovered/Resolved]
  - Nausea [Recovered/Resolved]
  - Headache [Recovered/Resolved]
  - Infusion related reaction [Recovered/Resolved]
  - Oropharyngeal pain [Unknown]
  - Diarrhoea [Unknown]
